FAERS Safety Report 18914871 (Version 1)
Quarter: 2021Q1

REPORT INFORMATION
  Report Type: Spontaneous
  Country: US (occurrence: US)
  Receive Date: 20210218
  Receipt Date: 20210218
  Transmission Date: 20210420
  Serious: Yes (Other)
  Sender: FDA-Public Use
  Company Number: None

PATIENT
  Age: 20 Year
  Sex: Male

DRUGS (1)
  1. PREGABALIN. [Suspect]
     Active Substance: PREGABALIN
     Route: 048
     Dates: start: 20210216, end: 20210217

REACTIONS (3)
  - Product physical issue [None]
  - Drug ineffective [None]
  - Sedation [None]

NARRATIVE: CASE EVENT DATE: 20210217
